FAERS Safety Report 5741600-6 (Version None)
Quarter: 2008Q2

REPORT INFORMATION
  Report Type: 
  Country: None (occurrence: None)
  Receive Date: 20080519
  Receipt Date: 20070627
  Transmission Date: 20081010
  Serious: Yes (Hospitalization)
  Sender: FDA-Public Use
  Company Number: US-BAYER-US-2007-023785

PATIENT
  Sex: Male

DRUGS (3)
  1. FLUDARA [Suspect]
     Indication: LYMPHOMA
  2. CYCLOPHOSPHAMIDE [Suspect]
     Indication: LYMPHOMA
  3. RITUXAN [Suspect]
     Indication: LYMPHOMA

REACTIONS (1)
  - PANCYTOPENIA [None]
